FAERS Safety Report 22228919 (Version 1)
Quarter: 2023Q2

REPORT INFORMATION
  Report Type: Spontaneous
  Country: US (occurrence: US)
  Receive Date: 20230419
  Receipt Date: 20230419
  Transmission Date: 20230722
  Serious: Yes (Other)
  Sender: FDA-Public Use
  Company Number: US-drreddys-SPO/USA/23/0163652

PATIENT
  Age: 16 Year
  Sex: Male

DRUGS (1)
  1. ISOTRETINOIN [Suspect]
     Active Substance: ISOTRETINOIN
     Indication: Product used for unknown indication
     Dates: start: 20220819, end: 20221107

REACTIONS (3)
  - Idiopathic intracranial hypertension [Unknown]
  - Papilloedema [Unknown]
  - Headache [Unknown]

NARRATIVE: CASE EVENT DATE: 20221107
